FAERS Safety Report 24551325 (Version 2)
Quarter: 2024Q4

REPORT INFORMATION
  Report Type: Report from Study
  Country: US (occurrence: US)
  Receive Date: 20241025
  Receipt Date: 20241107
  Transmission Date: 20250115
  Serious: Yes (Other)
  Sender: ABBVIE
  Company Number: US-ABBVIE-5974326

PATIENT
  Age: 8 Year
  Sex: Male
  Weight: 46.266 kg

DRUGS (1)
  1. LUPRON DEPOT [Suspect]
     Active Substance: LEUPROLIDE ACETATE
     Indication: Precocious puberty
     Dosage: FORM STRENGTH: 11.25 MILLIGRAM
     Route: 030
     Dates: start: 2022, end: 2024

REACTIONS (4)
  - Seizure [Recovering/Resolving]
  - Postural orthostatic tachycardia syndrome [Recovered/Resolved]
  - Ventricular tachycardia [Recovering/Resolving]
  - Hormone level abnormal [Recovering/Resolving]

NARRATIVE: CASE EVENT DATE: 20230101
